FAERS Safety Report 8329740-9 (Version None)
Quarter: 2012Q2

REPORT INFORMATION
  Report Type: 
  Country: None (occurrence: None)
  Receive Date: 20120502
  Receipt Date: 20120423
  Transmission Date: 20120825
  Serious: No
  Sender: FDA-Public Use
  Company Number: US-BAYER-2012-040979

PATIENT

DRUGS (4)
  1. DAYQUIL [DEXTROMET HBR,GUAIF,PARACET,PSEUDOEPH HCL] [Concomitant]
  2. MUCINEX [Concomitant]
  3. NAPROXEN SODIUM [Suspect]
     Route: 048
  4. TYLENOL W/ CODEINE NO. 3 [Concomitant]

REACTIONS (1)
  - NO ADVERSE EVENT [None]
